FAERS Safety Report 5010775-9 (Version None)
Quarter: 2006Q2

REPORT INFORMATION
  Report Type: 
  Country: None (occurrence: None)
  Receive Date: 20060524
  Receipt Date: 20060524
  Transmission Date: 20061013
  Serious: Yes (Hospitalization)
  Sender: FDA-Public Use
  Company Number: None

PATIENT
  Age: 63 Year
  Sex: Male
  Weight: 93 kg

DRUGS (8)
  1. ALDESLEUKIN [Suspect]
     Indication: RENAL CELL CARCINOMA STAGE UNSPECIFIED
     Dosage: 11 M14 SQ D1-5 X6 WKS
     Route: 058
     Dates: start: 20060427, end: 20060516
  2. CYTOMEL [Concomitant]
  3. SYNTHROID [Concomitant]
  4. PROLEUKIN [Concomitant]
  5. AVASTIN [Concomitant]
  6. LEXAPRO [Concomitant]
  7. DILAUDID [Concomitant]
  8. COMPAZINE [Concomitant]

REACTIONS (4)
  - CONFUSIONAL STATE [None]
  - DISEASE PROGRESSION [None]
  - DYSPNOEA [None]
  - PLEURAL EFFUSION [None]
